FAERS Safety Report 4706900-7 (Version None)
Quarter: 2005Q2

REPORT INFORMATION
  Report Type: 
  Country: None (occurrence: None)
  Receive Date: 20050630
  Receipt Date: 20050620
  Transmission Date: 20051028
  Serious: Yes (Life-Threatening)
  Sender: FDA-Public Use
  Company Number: MK200506-0358-1

PATIENT
  Age: 52 Year
  Sex: Female

DRUGS (2)
  1. TRAMADOL HYDROCHLORIDE TABS 50 MG [Suspect]
     Indication: PAIN
     Dosage: 50 MG, BID, PO
     Route: 048
  2. DESMOPRESSINE [Concomitant]

REACTIONS (4)
  - DYSSTASIA [None]
  - OEDEMA [None]
  - SENSORY LOSS [None]
  - SWOLLEN TONGUE [None]
